FAERS Safety Report 12843539 (Version 2)
Quarter: 2016Q4

REPORT INFORMATION
  Report Type: Spontaneous
  Country: BR (occurrence: BR)
  Receive Date: 20161013
  Receipt Date: 20161020
  Transmission Date: 20170207
  Serious: No
  Sender: FDA-Public Use
  Company Number: BR-SA-2015SA196620

PATIENT
  Sex: Female
  Weight: 60 kg

DRUGS (3)
  1. NATIFA [Suspect]
     Active Substance: ESTRADIOL
     Indication: BLOOD OESTROGEN
     Dosage: 2 TABLETS OF 1 MG
     Route: 048
     Dates: start: 20151121
  2. UTROGESTAN [Suspect]
     Active Substance: PROGESTERONE
     Indication: ILL-DEFINED DISORDER
     Dosage: 6 VAGINAL TABLETS PER DAY. 2 TABLETS IN THE MORNING, 2 IN THE AFTERNOON AND TWO AT NIGHT
     Route: 067
     Dates: start: 20151121
  3. CLEXANE [Suspect]
     Active Substance: ENOXAPARIN SODIUM
     Indication: PROPHYLAXIS
     Route: 065
     Dates: start: 201511

REACTIONS (1)
  - Exposure during pregnancy [Unknown]
